FAERS Safety Report 9631604 (Version 1)
Quarter: 2013Q4

REPORT INFORMATION
  Report Type: Spontaneous
  Country: US (occurrence: US)
  Receive Date: 20131018
  Receipt Date: 20131018
  Transmission Date: 20140711
  Serious: No
  Sender: FDA-Public Use
  Company Number: US-PFIZER INC-2013297318

PATIENT
  Age: 96 Year
  Sex: Female
  Weight: 54.42 kg

DRUGS (7)
  1. GABAPENTIN [Suspect]
     Indication: MIGRAINE
     Dosage: 3X/DAY, 300MG IN MORNING AND AFTERNOON AND 600MG AT NIGHT
  2. EFFEXOR [Suspect]
     Indication: MAJOR DEPRESSION
     Dosage: 75 MG, DAILY
     Dates: start: 201309
  3. EFFEXOR [Suspect]
     Indication: PANIC ATTACK
     Dosage: 150 MG, DAILY
  4. EFFEXOR [Suspect]
     Indication: ANXIETY DISORDER
  5. LEXAPRO [Suspect]
     Indication: DEPRESSION
     Dosage: 30 MG, 1X/DAY
     Dates: start: 2008, end: 201309
  6. MAXALT [Concomitant]
     Indication: MIGRAINE
     Dosage: 2.5 MG, AS NEEDED
  7. LORAZEPAM [Concomitant]
     Dosage: 1 MG, AS NEEDED

REACTIONS (3)
  - Off label use [Unknown]
  - Dizziness [Not Recovered/Not Resolved]
  - Drug ineffective [Unknown]
